FAERS Safety Report 12118616 (Version 1)
Quarter: 2016Q1

REPORT INFORMATION
  Report Type: Spontaneous
  Country: TR (occurrence: TR)
  Receive Date: 20160226
  Receipt Date: 20160226
  Transmission Date: 20160526
  Serious: Yes (Hospitalization, Other)
  Sender: FDA-Public Use
  Company Number: TR-WATSON-2016-04498

PATIENT
  Age: 31 Year
  Sex: Male

DRUGS (1)
  1. RISPERIDONE (UNKNOWN) [Suspect]
     Active Substance: RISPERIDONE
     Indication: DRUG DEPENDENCE
     Dosage: 1 MG, DAILY
     Route: 065

REACTIONS (1)
  - Hepatotoxicity [Unknown]
